FAERS Safety Report 23648912 (Version 4)
Quarter: 2024Q2

REPORT INFORMATION
  Report Type: Spontaneous
  Country: US (occurrence: US)
  Receive Date: 20240319
  Receipt Date: 20240408
  Transmission Date: 20240716
  Serious: Yes (Hospitalization)
  Sender: FDA-Public Use
  Company Number: US-PPDUS-2024ST001495

PATIENT
  Age: 58 Year
  Sex: Female

DRUGS (1)
  1. ORSERDU [Suspect]
     Active Substance: ELACESTRANT
     Indication: Product used for unknown indication
     Route: 048
     Dates: start: 20240226

REACTIONS (14)
  - Ventricular extrasystoles [Not Recovered/Not Resolved]
  - Pyrexia [Unknown]
  - Pain [Unknown]
  - Influenza [Unknown]
  - Obstructive airways disorder [Unknown]
  - Urinary tract infection [Unknown]
  - Neutropenia [Unknown]
  - Cough [Unknown]
  - Vomiting [Unknown]
  - Hypersomnia [Unknown]
  - Lethargy [Unknown]
  - Adverse reaction [Not Recovered/Not Resolved]
  - Nausea [Unknown]
  - Chest pain [Unknown]
